FAERS Safety Report 21487587 (Version 2)
Quarter: 2022Q4

REPORT INFORMATION
  Report Type: Other
  Country: JP (occurrence: None)
  Receive Date: 20221020
  Receipt Date: 20221104
  Transmission Date: 20230113
  Serious: Yes (Hospitalization)
  Sender: FDA-Public Use
  Company Number: JP-ROCHE-3202834

PATIENT
  Age: 72 Year
  Sex: Male
  Weight: 59 kg

DRUGS (9)
  1. ATEZOLIZUMAB [Suspect]
     Active Substance: ATEZOLIZUMAB
     Indication: Hepatocellular carcinoma
     Dosage: SEVEN COURSES
     Route: 065
  2. BEVACIZUMAB [Suspect]
     Active Substance: BEVACIZUMAB
     Indication: Hepatocellular carcinoma
     Dosage: SEVEN COURSES
     Route: 065
  3. FAMOTIDINE [Concomitant]
     Active Substance: FAMOTIDINE
  4. ENTECAVIR [Concomitant]
     Active Substance: ENTECAVIR
  5. WARFARIN POTASSIUM [Concomitant]
     Active Substance: WARFARIN POTASSIUM
  6. RIFAXIMIN [Concomitant]
     Active Substance: RIFAXIMIN
  7. L-ISOLEUCINE [Concomitant]
  8. LEUCINE [Concomitant]
     Active Substance: LEUCINE
  9. VALINE [Concomitant]
     Active Substance: VALINE

REACTIONS (2)
  - Jejunal perforation [Recovered/Resolved]
  - Enteritis [Recovered/Resolved]
